FAERS Safety Report 21966618 (Version 1)
Quarter: 2023Q1

REPORT INFORMATION
  Report Type: Spontaneous
  Country: DE (occurrence: DE)
  Receive Date: 20230208
  Receipt Date: 20230208
  Transmission Date: 20230418
  Serious: Yes (Congenital Anomaly)
  Sender: FDA-Public Use
  Company Number: DE-EMBRYOTOX-202117754

PATIENT
  Age: 1 Day
  Sex: Female
  Weight: 3.94 kg

DRUGS (4)
  1. SUMATRIPTAN [Suspect]
     Active Substance: SUMATRIPTAN
     Indication: Foetal exposure during pregnancy
     Dosage: UNK (100 MG/D/ GW 2+6, 5+0, 6+5, 7+6, 9+3, 10+6, 11+1, 12+5, 13+1, 13+5, 13+6, 14+2, 14+3, 16+1, 16+
     Route: 064
  2. IBUPROFEN [Concomitant]
     Active Substance: IBUPROFEN
     Indication: Foetal exposure during pregnancy
     Dosage: UNK (UNK (MATERNAL DOSE_600 MG, QD]) FROM 21 OCT 2021 TO 21 OCT 2021 FOR 1 DAY
     Route: 064
  3. EUTHYROX [Concomitant]
     Active Substance: LEVOTHYROXINE SODIUM
     Indication: Foetal exposure during pregnancy
     Dosage: UNK (150 ?G/D / BECAUSE OF GRAVES^ DISEASE; 150 ?G/D IN THE BEGINNING, INCREASED TO 225 ?G/D AT THE
     Route: 064
  4. VITAMIN D [Concomitant]
     Active Substance: VITAMIN D NOS
     Indication: Foetal exposure during pregnancy
     Dosage: UNK (1000 [I.E./D (GELGENTLICH) ]/ OCCASIONALLY, UNKNOWN UNTIL WHEN)
     Route: 064

REACTIONS (3)
  - Atrial septal defect [Recovered/Resolved]
  - Ventricular septal defect [Recovered/Resolved]
  - Foetal exposure during pregnancy [Unknown]

NARRATIVE: CASE EVENT DATE: 20220401
